FAERS Safety Report 13838369 (Version 2)
Quarter: 2017Q3

REPORT INFORMATION
  Report Type: Spontaneous
  Country: TR (occurrence: TR)
  Receive Date: 20170807
  Receipt Date: 20170807
  Transmission Date: 20171127
  Serious: No
  Sender: FDA-Public Use
  Company Number: TR-UCBSA-2017030131

PATIENT
  Age: 42 Year
  Sex: Male

DRUGS (6)
  1. KEPPRA [Suspect]
     Active Substance: LEVETIRACETAM
     Indication: EPILEPSY
     Dosage: 3000 MG, UNK
     Route: 048
  2. RISPERDAL [Concomitant]
     Active Substance: RISPERIDONE
     Indication: SCHIZOPHRENIA
  3. BENVIDA [Suspect]
     Active Substance: LACOSAMIDE
     Indication: EPILEPSY
     Dosage: 2 X 50MG
     Route: 048
     Dates: start: 20170415, end: 2017
  4. BENVIDA [Suspect]
     Active Substance: LACOSAMIDE
     Indication: PARTIAL SEIZURES
     Dosage: 100 MG, 2X/DAY (BID)
     Route: 048
     Dates: start: 2017, end: 20170720
  5. EPDANTOIN [Concomitant]
     Indication: GENERALISED TONIC-CLONIC SEIZURE
     Dosage: 300 MG, UNK
     Route: 048
  6. RISPERDAL [Concomitant]
     Active Substance: RISPERIDONE
     Indication: PSYCHOTIC DISORDER
     Dosage: 1 MG, UNK
     Route: 048

REACTIONS (3)
  - Postictal state [Recovering/Resolving]
  - Discomfort [Recovering/Resolving]
  - Aggression [Recovering/Resolving]

NARRATIVE: CASE EVENT DATE: 20170415
